FAERS Safety Report 17087537 (Version 10)
Quarter: 2020Q3

REPORT INFORMATION
  Report Type: Report from Study
  Country: DE (occurrence: DE)
  Receive Date: 20191128
  Receipt Date: 20200914
  Transmission Date: 20201102
  Serious: Yes (Life-Threatening, Hospitalization, Disabling)
  Sender: FDA-Public Use
  Company Number: DE-ROCHE-2478947

PATIENT
  Age: 47 Year
  Sex: Male
  Weight: 77 kg

DRUGS (28)
  1. TOVIAZ [Concomitant]
     Active Substance: FESOTERODINE FUMARATE
     Indication: BLADDER DYSFUNCTION
     Dates: start: 20190616
  2. SELEN [Concomitant]
     Active Substance: SELENIUM
     Dates: start: 20150421
  3. PLACEBO [Suspect]
     Active Substance: UNSPECIFIED INGREDIENT
     Indication: RELAPSING-REMITTING MULTIPLE SCLEROSIS
     Route: 058
     Dates: start: 20131220, end: 20140110
  4. CIPROFLOXACINE [Concomitant]
     Active Substance: CIPROFLOXACIN
     Route: 042
  5. ANGOCIN [Concomitant]
     Dates: start: 201908
  6. IG VENA [Concomitant]
     Active Substance: HUMAN IMMUNOGLOBULIN G
     Indication: HYPOGAMMAGLOBULINAEMIA
     Dates: start: 20200609, end: 20200609
  7. METHYLPREDNISOLONE. [Concomitant]
     Active Substance: METHYLPREDNISOLONE
     Indication: PREMEDICATION
     Dosage: SUBSEQUENT DOSES ON: 02/MAR/2012, 03/AUG/2012, 18/JAN/2013, 05/JUL/2013, 14/JAN/2014, 28/JAN/2014, 3
     Dates: start: 20120217, end: 20120217
  8. SELEN [Concomitant]
     Active Substance: SELENIUM
     Indication: NUTRITIONAL SUPPLEMENTATION
     Dates: start: 201001, end: 20110831
  9. PROPANOLOL [Concomitant]
     Active Substance: PROPRANOLOL HYDROCHLORIDE
     Dates: start: 20190807
  10. METHYLPREDNISOLONE. [Concomitant]
     Active Substance: METHYLPREDNISOLONE
     Dates: start: 20190819
  11. DESLORATADINE. [Concomitant]
     Active Substance: DESLORATADINE
     Indication: RHINITIS ALLERGIC
     Dates: start: 20170612
  12. TOPIRAMAT [Concomitant]
     Active Substance: TOPIRAMATE
     Indication: ATAXIA
     Dates: start: 20190807
  13. TOPIRAMAT [Concomitant]
     Active Substance: TOPIRAMATE
     Dates: start: 20190830
  14. ZOPICLON [Concomitant]
     Active Substance: ZOPICLONE
     Indication: SLEEP DISORDER
     Dates: start: 201908
  15. FAMPYRA [Concomitant]
     Active Substance: DALFAMPRIDINE
     Indication: GAIT DISTURBANCE
     Dates: start: 20190807
  16. OCRELIZUMAB. [Suspect]
     Active Substance: OCRELIZUMAB
     Dosage: 300 MG INFUSIONS ON DAYS 1 AND 15 FOR THE FIRST DOSE AND AS A SINGLE INFUSION OF 600 MG FOR ALL SUBS
     Route: 042
     Dates: start: 20120803, end: 20120803
  17. OCRELIZUMAB. [Suspect]
     Active Substance: OCRELIZUMAB
     Dosage: OLE?WEEK 24?300 MG INFUSIONS ON DAYS 1 AND 15 FOR THE FIRST DOSE AND AS A SINGLE INFUSION OF 600 MG
     Route: 042
     Dates: start: 20140128, end: 20140128
  18. PARACETAMOL [Concomitant]
     Active Substance: ACETAMINOPHEN
     Indication: PREMEDICATION
     Dosage: SUBSEQUENT DOSES ON: 02/MAR/2012, 03/AUG/2012, 18/JAN/2013, 05/JUL/2013, 14/JAN/2014, 28/JAN/2014, 3
     Dates: start: 20120217
  19. CERTOPARIN [Concomitant]
     Active Substance: CERTOPARIN SODIUM
     Dates: start: 201908
  20. BACLOFEN. [Concomitant]
     Active Substance: BACLOFEN
     Dates: start: 20190807
  21. OCRELIZUMAB. [Suspect]
     Active Substance: OCRELIZUMAB
     Indication: RELAPSING-REMITTING MULTIPLE SCLEROSIS
     Dosage: 300 MG INFUSIONS ON DAYS 1 AND 15 FOR THE FIRST DOSE AND AS A SINGLE INFUSION OF 600 MG FOR ALL SUBS
     Route: 042
     Dates: start: 20120217, end: 20120217
  22. OCRELIZUMAB. [Suspect]
     Active Substance: OCRELIZUMAB
     Dosage: 300 MG INFUSIONS ON DAYS 1 AND 15 FOR THE FIRST DOSE AND AS A SINGLE INFUSION OF 600 MG FOR ALL SUBS
     Route: 042
     Dates: start: 20120302, end: 20120302
  23. OCRELIZUMAB. [Suspect]
     Active Substance: OCRELIZUMAB
     Indication: RELAPSING-REMITTING MULTIPLE SCLEROSIS
     Dosage: OLE?WEEK 0?300 MG INFUSIONS ON DAYS 1 AND 15 FOR THE FIRST DOSE AND AS A SINGLE INFUSION OF 600 MG F
     Route: 042
     Dates: start: 20140114, end: 20140114
  24. VANCOMYCIN [Concomitant]
     Active Substance: VANCOMYCIN
     Dates: start: 20191116, end: 20191125
  25. IG VENA [Concomitant]
     Active Substance: HUMAN IMMUNOGLOBULIN G
     Dates: start: 20200721, end: 20200721
  26. TOVIAZ [Concomitant]
     Active Substance: FESOTERODINE FUMARATE
     Dates: start: 20130328, end: 20130723
  27. PROPANOLOL [Concomitant]
     Active Substance: PROPRANOLOL HYDROCHLORIDE
     Indication: ATAXIA
     Dates: start: 201908
  28. DIMETINDENE MALEATE [Concomitant]
     Active Substance: DIMETHINDENE MALEATE
     Indication: PREMEDICATION
     Dosage: SUBSEQUENT DOSES ON: 02/MAR/2012, 03/AUG/2012, 18/JAN/2013, 05/JUL/2013, 14/JAN/2014, 28/JAN/2014, 3
     Dates: start: 20120217

REACTIONS (2)
  - Urinary tract infection [Recovered/Resolved with Sequelae]
  - Urosepsis [Recovered/Resolved]

NARRATIVE: CASE EVENT DATE: 20191112
